FAERS Safety Report 25586689 (Version 1)
Quarter: 2025Q3

REPORT INFORMATION
  Report Type: Spontaneous
  Country: US (occurrence: None)
  Receive Date: 20250720
  Receipt Date: 20250720
  Transmission Date: 20251021
  Serious: Yes (Other)
  Sender: FDA-CTU
  Company Number: None

PATIENT
  Age: 40 Year
  Sex: Female
  Weight: 71.55 kg

DRUGS (1)
  1. VITAMIN D2 [Suspect]
     Active Substance: ERGOCALCIFEROL
     Route: 048
     Dates: start: 20250710, end: 20250717

REACTIONS (3)
  - Headache [None]
  - Urticaria [None]
  - Stress [None]

NARRATIVE: CASE EVENT DATE: 20250712
